FAERS Safety Report 8214521-7 (Version None)
Quarter: 2012Q1

REPORT INFORMATION
  Report Type: 
  Country: None (occurrence: None)
  Receive Date: 20120316
  Receipt Date: 20120316
  Transmission Date: 20120608
  Serious: No
  Sender: FDA-Public Use
  Company Number: None

PATIENT
  Age: 57 Year
  Sex: Male
  Weight: 117.93 kg

DRUGS (1)
  1. VERAPAMIL HCL [Suspect]
     Indication: HYPERTENSION
     Dosage: 180MG
     Dates: start: 20120218, end: 20120315

REACTIONS (3)
  - HYPOTENSION [None]
  - RESPIRATORY DISORDER [None]
  - HEART RATE DECREASED [None]
